FAERS Safety Report 15687609 (Version 3)
Quarter: 2018Q4

REPORT INFORMATION
  Report Type: Spontaneous
  Country: US (occurrence: US)
  Receive Date: 20181205
  Receipt Date: 20181230
  Transmission Date: 20190205
  Serious: Yes (Hospitalization, Other)
  Sender: FDA-Public Use
  Company Number: US-ROCHE-2196967

PATIENT
  Age: 77 Year
  Sex: Male
  Weight: 69.01 kg

DRUGS (34)
  1. LIPITOR [Concomitant]
     Active Substance: ATORVASTATIN CALCIUM
     Route: 048
  2. VITAMIN B12 [Concomitant]
     Active Substance: CYANOCOBALAMIN
     Route: 048
  3. ARANESP [Concomitant]
     Active Substance: DARBEPOETIN ALFA
     Dosage: 200MCG/0.4ML INJ SYRINGE
     Route: 065
  4. LOSARTAN. [Concomitant]
     Active Substance: LOSARTAN
     Route: 065
  5. GAZYVA [Suspect]
     Active Substance: OBINUTUZUMAB
     Dosage: C6
     Route: 042
     Dates: start: 20180830, end: 20180926
  6. VITAMIN D3 [Concomitant]
     Active Substance: CHOLECALCIFEROL
     Dosage: 1000 UNITS DAILY
     Route: 048
  7. FOLIC ACID. [Concomitant]
     Active Substance: FOLIC ACID
     Route: 048
  8. VITAMIN B COMPLEX [Concomitant]
     Active Substance: CYANOCOBALAMIN\DEXPANTHENOL\NIACINAMIDE\PYRIDOXINE HYDROCHLORIDE\RIBOFLAVIN 5^-PHOSPHATE SODIUM\THIAMINE HYDROCHLORIDE\VITAMIN B COMPLEX
     Route: 050
  9. OMEPRAZOLE. [Concomitant]
     Active Substance: OMEPRAZOLE
     Route: 065
  10. ACYCLOVIR. [Concomitant]
     Active Substance: ACYCLOVIR
  11. RESTORIL [Concomitant]
     Active Substance: TEMAZEPAM
     Route: 065
  12. LASIX [Concomitant]
     Active Substance: FUROSEMIDE
     Route: 048
  13. GAZYVA [Suspect]
     Active Substance: OBINUTUZUMAB
     Indication: CHRONIC LYMPHOCYTIC LEUKAEMIA
     Dosage: 100 MG ON DAY 1 (D1), 900MG D2,1000 MG ON D8 AND D15 OF CYCLE 1 (C1); THEN 1000 MG ON D1 OF EVERY 28
     Route: 042
     Dates: start: 20180412, end: 20180601
  14. ASPIRIN. [Concomitant]
     Active Substance: ASPIRIN
     Route: 065
  15. CALCIUM CARBONATE. [Concomitant]
     Active Substance: CALCIUM CARBONATE
     Route: 048
  16. ARANESP [Concomitant]
     Active Substance: DARBEPOETIN ALFA
     Dosage: 200MCGX1 V2.0
     Route: 065
     Dates: start: 20180510
  17. ZOFRAN [Concomitant]
     Active Substance: ONDANSETRON HYDROCHLORIDE
     Route: 065
  18. ASPIRIN. [Concomitant]
     Active Substance: ASPIRIN
     Route: 048
  19. TOPROL XL [Concomitant]
     Active Substance: METOPROLOL SUCCINATE
     Route: 048
  20. BACTRIM DS [Concomitant]
     Active Substance: SULFAMETHOXAZOLE\TRIMETHOPRIM
     Route: 048
  21. NADOLOL. [Concomitant]
     Active Substance: NADOLOL
     Route: 065
  22. ALLOPURINOL. [Concomitant]
     Active Substance: ALLOPURINOL
     Route: 048
     Dates: start: 20180411
  23. VITAMIN C [Concomitant]
     Active Substance: ASCORBIC ACID
     Route: 048
  24. NEULASTA [Concomitant]
     Active Substance: PEGFILGRASTIM
     Indication: NEUTROPENIA
     Route: 058
     Dates: start: 20180426, end: 20180426
  25. NEULASTA [Concomitant]
     Active Substance: PEGFILGRASTIM
     Route: 058
  26. ZOVIRAX [Concomitant]
     Active Substance: ACYCLOVIR
     Route: 048
  27. ZINGIBER OFFICINALE [Concomitant]
     Active Substance: GINGER
     Route: 048
  28. MILK THISTLE [Concomitant]
     Active Substance: DIETARY SUPPLEMENT\HERBALS\MILK THISTLE
     Route: 048
  29. TURMERIC [Concomitant]
     Active Substance: HERBALS\TURMERIC
     Route: 048
  30. ANDRODERM [Concomitant]
     Active Substance: TESTOSTERONE
     Route: 062
  31. ANDROGEL [Concomitant]
     Active Substance: TESTOSTERONE
     Dosage: 25MG/2.5 GRAM
     Route: 062
  32. LOTRIMIN (CLOTRIMAZOLE) [Concomitant]
     Route: 065
  33. PRILOSEC [Concomitant]
     Active Substance: OMEPRAZOLE MAGNESIUM
     Route: 048
  34. REMERON [Concomitant]
     Active Substance: MIRTAZAPINE

REACTIONS (12)
  - Cerebral disorder [Unknown]
  - Drug hypersensitivity [Unknown]
  - Respiratory failure [Recovering/Resolving]
  - Immunodeficiency [Unknown]
  - Mental impairment [Unknown]
  - Humerus fracture [Unknown]
  - Pneumonia [Recovering/Resolving]
  - Rib fracture [Unknown]
  - Balance disorder [Unknown]
  - Fall [Unknown]
  - Progressive multifocal leukoencephalopathy [Recovering/Resolving]
  - Impaired driving ability [Unknown]

NARRATIVE: CASE EVENT DATE: 20180602
